FAERS Safety Report 21827358 (Version 1)
Quarter: 2023Q1

REPORT INFORMATION
  Report Type: Spontaneous
  Country: ZA (occurrence: None)
  Receive Date: 20230106
  Receipt Date: 20230106
  Transmission Date: 20230418
  Serious: Yes (Death)
  Sender: FDA-Public Use
  Company Number: 2023A001418

PATIENT
  Age: 82 Year
  Sex: Male

DRUGS (5)
  1. ESOMEPRAZOLE [Suspect]
     Active Substance: ESOMEPRAZOLE
     Indication: Ulcer
     Route: 048
  2. DUOLIN [Concomitant]
     Indication: Inhalation therapy
     Dosage: AS REQUIRED
     Route: 055
  3. FERRIMED [Concomitant]
     Indication: Mineral supplementation
     Route: 048
  4. ZIMBUS BREEZHALER [Concomitant]
     Indication: Asthma
     Dosage: 150UG/INHAL DAILY
     Route: 055
  5. ROSUVASTATIN [Concomitant]
     Active Substance: ROSUVASTATIN
     Indication: Blood cholesterol
     Route: 048

REACTIONS (1)
  - Death [Fatal]
